FAERS Safety Report 14944519 (Version 4)
Quarter: 2020Q2

REPORT INFORMATION
  Report Type: Spontaneous
  Country: CA (occurrence: CA)
  Receive Date: 20180529
  Receipt Date: 20200622
  Transmission Date: 20200713
  Serious: Yes (Other)
  Sender: FDA-Public Use
  Company Number: CA-MACLEODS PHARMACEUTICALS US LTD-MAC2018013744

PATIENT

DRUGS (11)
  1. ESCITALOPRAM [Suspect]
     Active Substance: ESCITALOPRAM OXALATE
     Indication: PRODUCT USED FOR UNKNOWN INDICATION
     Dosage: UNK
     Route: 065
  2. HYDROMORPHONE [Concomitant]
     Active Substance: HYDROMORPHONE
     Dosage: UNK
     Route: 065
  3. HEPARIN [Suspect]
     Active Substance: HEPARIN SODIUM
     Dosage: 5000 UNIT
     Route: 058
  4. EPINEPHRINE. [Concomitant]
     Active Substance: EPINEPHRINE
     Indication: PRODUCT USED FOR UNKNOWN INDICATION
     Dosage: TEST DOSE OF 3 ML OF LIDOCAINE 2% WITH EPINEPHRINE 5 ?G/ML
     Route: 065
  5. BUPIVACAINE. [Concomitant]
     Active Substance: BUPIVACAINE
     Dosage: UNK
     Route: 065
  6. LIDOCAINE. [Concomitant]
     Active Substance: LIDOCAINE
     Dosage: UNK
     Route: 065
  7. BUPIVACAINE. [Concomitant]
     Active Substance: BUPIVACAINE
     Indication: PRODUCT USED FOR UNKNOWN INDICATION
     Dosage: 1 MG/ML, INFUSION
     Route: 065
  8. HEPARIN [Suspect]
     Active Substance: HEPARIN SODIUM
     Indication: THROMBOSIS PROPHYLAXIS
     Dosage: UNK, BID (12 HOUR), 5000 U
     Route: 058
  9. LIDOCAINE. [Concomitant]
     Active Substance: LIDOCAINE
     Indication: PRODUCT USED FOR UNKNOWN INDICATION
     Dosage: 3 MILLILITER, A TEST DOSE OF 3 ML OF LIDOCAINE 2% WITH EPINEPHRINE 5 ?G/ML
     Route: 065
  10. HYDROMORPHONE [Concomitant]
     Active Substance: HYDROMORPHONE
     Indication: PRODUCT USED FOR UNKNOWN INDICATION
     Dosage: 10 ?G/ML WAS INITIATED DURING THE PROCEDURE AND MAINTAINED AT 6 ML/H, INFUSION
     Route: 065
  11. EPINEPHRINE. [Concomitant]
     Active Substance: EPINEPHRINE
     Dosage: UNK
     Route: 065

REACTIONS (9)
  - Platelet count decreased [Unknown]
  - Extradural haematoma [Unknown]
  - Hypotension [Unknown]
  - Paralysis [Recovering/Resolving]
  - Haemorrhage [Unknown]
  - Spinal cord compression [Unknown]
  - Hypovolaemia [Unknown]
  - Platelet aggregation inhibition [Unknown]
  - Oedema [Unknown]
